FAERS Safety Report 4656728-1 (Version None)
Quarter: 2005Q2

REPORT INFORMATION
  Report Type: 
  Country: None (occurrence: None)
  Receive Date: 20050408
  Receipt Date: 20050215
  Transmission Date: 20051028
  Serious: No
  Sender: FDA-Public Use
  Company Number: 230654K05USA

PATIENT
  Age: 46 Year
  Sex: Female

DRUGS (4)
  1. REBIF (INTERFERON BETA) [Suspect]
     Indication: MULTIPLE SCLEROSIS
     Dosage: 44 MCG, 3 IN 1 WEEKS, SUBCUTANEOUS
     Route: 058
     Dates: start: 20030926
  2. ATENOLOL [Concomitant]
  3. LEXAPRO [Concomitant]
  4. LIPITOR [Concomitant]

REACTIONS (17)
  - ANXIETY [None]
  - CHROMATURIA [None]
  - EAR INFECTION [None]
  - FATIGUE [None]
  - HEPATIC ENZYME INCREASED [None]
  - HYPOAESTHESIA [None]
  - INJECTION SITE ERYTHEMA [None]
  - INJECTION SITE HAEMORRHAGE [None]
  - INJECTION SITE REACTION [None]
  - INSOMNIA [None]
  - MUSCLE SPASMS [None]
  - PAIN [None]
  - PAIN IN EXTREMITY [None]
  - PHARYNGITIS STREPTOCOCCAL [None]
  - PRURITUS [None]
  - RHINORRHOEA [None]
  - VAGINAL INFECTION [None]
